FAERS Safety Report 7508602-0 (Version None)
Quarter: 2011Q2

REPORT INFORMATION
  Report Type: 
  Country: None (occurrence: None)
  Receive Date: 20110527
  Receipt Date: 20101215
  Transmission Date: 20111010
  Serious: No
  Sender: FDA-Public Use
  Company Number: A0900725A

PATIENT
  Age: 47 Year
  Sex: Female
  Weight: 63.5 kg

DRUGS (5)
  1. FLOLAN [Suspect]
     Route: 065
     Dates: start: 20000331
  2. ACETAMINOPHEN [Concomitant]
     Dosage: 325MG AS REQUIRED
  3. COUMADIN [Concomitant]
  4. REVATIO [Suspect]
     Dosage: 20MG PER DAY
     Route: 065
  5. FERROUS GLUCONATE [Concomitant]
     Dosage: 325MG PER DAY

REACTIONS (3)
  - DRUG INTERACTION [None]
  - RASH [None]
  - RASH MACULAR [None]
